FAERS Safety Report 25450212 (Version 5)
Quarter: 2025Q3

REPORT INFORMATION
  Report Type: Report from Study
  Country: US (occurrence: US)
  Receive Date: 20250618
  Receipt Date: 20250919
  Transmission Date: 20251021
  Serious: Yes (Other)
  Sender: TAKEDA
  Company Number: US-TAKEDA-2024TUS104385

PATIENT
  Sex: Male

DRUGS (23)
  1. MARIBAVIR [Suspect]
     Active Substance: MARIBAVIR
     Indication: Cytomegalovirus infection
  2. MARIBAVIR [Suspect]
     Active Substance: MARIBAVIR
     Dosage: 400 MILLIGRAM, BID
     Dates: start: 20241023
  3. MARIBAVIR [Suspect]
     Active Substance: MARIBAVIR
     Dosage: 400 MILLIGRAM, BID
     Dates: start: 20241113
  4. MARIBAVIR [Suspect]
     Active Substance: MARIBAVIR
     Dosage: 400 MILLIGRAM, BID
     Dates: end: 20250101
  5. MARIBAVIR [Suspect]
     Active Substance: MARIBAVIR
     Dosage: 400 MILLIGRAM, BID
     Dates: start: 20250205, end: 20250603
  6. MARIBAVIR [Suspect]
     Active Substance: MARIBAVIR
     Dosage: 400 MILLIGRAM, BID
     Dates: start: 20250601
  7. ELIQUIS [Concomitant]
     Active Substance: APIXABAN
     Indication: Prophylaxis
     Dosage: UNK UNK, BID
  8. ELIQUIS [Concomitant]
     Active Substance: APIXABAN
     Indication: Thrombosis
  9. ELIQUIS [Concomitant]
     Active Substance: APIXABAN
     Indication: Cerebrovascular accident
  10. ZOVIRAX [Concomitant]
     Active Substance: ACYCLOVIR
     Indication: Prophylaxis
     Dosage: UNK UNK, BID
  11. ZOVIRAX [Concomitant]
     Active Substance: ACYCLOVIR
     Indication: Herpes virus infection
  12. COREG [Concomitant]
     Active Substance: CARVEDILOL
     Indication: Hypertension
     Dosage: UNK UNK, BID
  13. LIPITOR [Concomitant]
     Active Substance: ATORVASTATIN CALCIUM
     Indication: Arteriosclerosis
     Dosage: UNK UNK, QD
  14. SEROQUEL [Concomitant]
     Active Substance: QUETIAPINE FUMARATE
     Dosage: UNK UNK, QD
  15. IMURAN [Concomitant]
     Active Substance: AZATHIOPRINE
     Indication: Kidney transplant rejection
     Dosage: UNK UNK, QD
  16. IMURAN [Concomitant]
     Active Substance: AZATHIOPRINE
     Indication: Prophylaxis
  17. PROGRAF [Concomitant]
     Active Substance: TACROLIMUS
     Indication: Kidney transplant rejection
     Dosage: UNK UNK, BID
  18. PROGRAF [Concomitant]
     Active Substance: TACROLIMUS
     Indication: Prophylaxis
  19. DELTASONE [Concomitant]
     Active Substance: PREDNISONE
     Indication: Kidney transplant rejection
     Dosage: UNK UNK, QD
  20. DELTASONE [Concomitant]
     Active Substance: PREDNISONE
     Indication: Prophylaxis
  21. PRILOSEC [Concomitant]
     Active Substance: OMEPRAZOLE MAGNESIUM
     Indication: Gastrooesophageal reflux disease
     Dosage: UNK UNK, QD
  22. SODIUM BICARBONATE [Concomitant]
     Active Substance: SODIUM BICARBONATE
     Indication: Acidosis
     Dosage: UNK UNK, TID
  23. VITAMIN D3 [Concomitant]
     Active Substance: CHOLECALCIFEROL

REACTIONS (4)
  - Cytomegalovirus infection reactivation [Unknown]
  - Infection [Unknown]
  - Drug resistance [Unknown]
  - Dysgeusia [Recovered/Resolved]
